FAERS Safety Report 11117559 (Version 1)
Quarter: 2015Q2

REPORT INFORMATION
  Report Type: Spontaneous
  Country: CH (occurrence: CH)
  Receive Date: 20150517
  Receipt Date: 20150517
  Transmission Date: 20150821
  Serious: Yes (Disabling)
  Sender: FDA-Public Use
  Company Number: CHPA2015CH006117

PATIENT
  Age: 37 Year
  Sex: Female

DRUGS (4)
  1. TERBINAFINE [Suspect]
     Active Substance: TERBINAFINE
     Dosage: 1 DF, QW
     Route: 048
     Dates: start: 20150109, end: 20150220
  2. TERBINAFINE [Suspect]
     Active Substance: TERBINAFINE
     Indication: ONYCHOMYCOSIS
     Dosage: 1 DF, QD
     Route: 048
     Dates: start: 20141126, end: 20141205
  3. RELPAX [Concomitant]
     Active Substance: ELETRIPTAN HYDROBROMIDE
     Indication: MIGRAINE
     Dosage: UNK UNK, PRN (AS NECESSARY)
     Route: 048
  4. TERBINAFINE [Suspect]
     Active Substance: TERBINAFINE
     Dosage: 0.5 DF, QD
     Route: 048
     Dates: start: 20141206, end: 20150108

REACTIONS (2)
  - Deafness [Not Recovered/Not Resolved]
  - Tinnitus [Not Recovered/Not Resolved]

NARRATIVE: CASE EVENT DATE: 20141225
